FAERS Safety Report 17194864 (Version 1)
Quarter: 2019Q4

REPORT INFORMATION
  Report Type: Spontaneous
  Country: JP (occurrence: JP)
  Receive Date: 20191224
  Receipt Date: 20191224
  Transmission Date: 20200122
  Serious: Yes (Hospitalization)
  Sender: FDA-Public Use
  Company Number: JP-GLAXOSMITHKLINE-JP2019JPN232555

PATIENT
  Age: 58 Year
  Sex: Female

DRUGS (9)
  1. MEPTIN [Suspect]
     Active Substance: PROCATEROL HYDROCHLORIDE
     Dosage: UNK
  2. MONTELUKAST SODIUM TABLET [Concomitant]
     Active Substance: MONTELUKAST SODIUM
     Dosage: 10 MG
  3. LOXONIN TAPE [Concomitant]
     Active Substance: LOXOPROFEN SODIUM DIHYDRATE
     Dosage: 100 MG
     Route: 061
  4. OLOPATADINE HYDROCHLORIDE OD [Concomitant]
     Dosage: UNK
  5. PREDONINE [Suspect]
     Active Substance: PREDNISOLONE
     Dosage: 5 MG
  6. SPIRIVA [Suspect]
     Active Substance: TIOTROPIUM BROMIDE MONOHYDRATE
     Dosage: 2.5 ?G
  7. SERETIDE [Suspect]
     Active Substance: FLUTICASONE PROPIONATE\SALMETEROL XINAFOATE
     Dosage: 500 ?G
     Route: 055
  8. LANSOPRAZOLE-OD [Concomitant]
     Active Substance: LANSOPRAZOLE
     Dosage: 15 MG
  9. CARBOCISTEINE [Concomitant]
     Active Substance: CARBOCYSTEINE
     Dosage: 250 MG

REACTIONS (2)
  - Hospitalisation [Unknown]
  - Dysphonia [Unknown]

NARRATIVE: CASE EVENT DATE: 2019
